FAERS Safety Report 6092767-4 (Version None)
Quarter: 2009Q1

REPORT INFORMATION
  Report Type: 
  Country: None (occurrence: None)
  Receive Date: 20090225
  Receipt Date: 20090217
  Transmission Date: 20090719
  Serious: Yes (Hospitalization)
  Sender: FDA-Public Use
  Company Number: FR-ASTRAZENECA-2009CG00400

PATIENT
  Age: 609 Month
  Sex: Female

DRUGS (8)
  1. NEXIUM [Suspect]
     Route: 048
     Dates: start: 20060101, end: 20080509
  2. DEROXAT [Suspect]
     Indication: DEPRESSION
     Dates: start: 20060101, end: 20080509
  3. LYRICA [Suspect]
     Dates: start: 20060101, end: 20080509
  4. XANAX [Suspect]
     Dates: start: 20060101, end: 20080509
  5. CYCLADOL [Suspect]
     Dates: start: 20060101, end: 20080509
  6. COAPROVEL [Suspect]
     Indication: HYPERTENSION
     Dates: start: 20060101, end: 20080509
  7. STILNOX [Suspect]
     Indication: INSOMNIA
     Dates: start: 20060101, end: 20080509
  8. MONOALGIC [Suspect]
     Dates: start: 20060101, end: 20080509

REACTIONS (2)
  - DERMATITIS BULLOUS [None]
  - RASH MACULO-PAPULAR [None]
